FAERS Safety Report 25643668 (Version 6)
Quarter: 2025Q3

REPORT INFORMATION
  Report Type: Spontaneous
  Country: US (occurrence: US)
  Receive Date: 20250805
  Receipt Date: 20250913
  Transmission Date: 20251020
  Serious: No
  Sender: CSL BEHRING
  Company Number: US-BEH-2025213931

PATIENT
  Age: 72 Year
  Sex: Female
  Weight: 43.8 kg

DRUGS (18)
  1. HIZENTRA [Suspect]
     Active Substance: HUMAN IMMUNOGLOBULIN G
     Indication: Weight decreased
     Dosage: 6 G, QW
     Route: 058
  2. HIZENTRA [Suspect]
     Active Substance: HUMAN IMMUNOGLOBULIN G
     Indication: Immune system disorder
     Route: 065
     Dates: start: 20250529
  3. HIZENTRA [Suspect]
     Active Substance: HUMAN IMMUNOGLOBULIN G
     Route: 065
     Dates: start: 20250620
  4. HIZENTRA [Suspect]
     Active Substance: HUMAN IMMUNOGLOBULIN G
     Route: 065
     Dates: start: 20250620
  5. HIZENTRA [Suspect]
     Active Substance: HUMAN IMMUNOGLOBULIN G
     Route: 065
     Dates: start: 20250529
  6. HIZENTRA [Suspect]
     Active Substance: HUMAN IMMUNOGLOBULIN G
     Route: 065
     Dates: start: 20250529
  7. HIZENTRA [Suspect]
     Active Substance: HUMAN IMMUNOGLOBULIN G
     Route: 065
  8. HIZENTRA [Suspect]
     Active Substance: HUMAN IMMUNOGLOBULIN G
     Route: 048
  9. HIZENTRA [Suspect]
     Active Substance: HUMAN IMMUNOGLOBULIN G
     Route: 065
     Dates: start: 20250711
  10. HIZENTRA [Suspect]
     Active Substance: HUMAN IMMUNOGLOBULIN G
     Route: 065
     Dates: start: 20250722
  11. HIZENTRA [Suspect]
     Active Substance: HUMAN IMMUNOGLOBULIN G
     Dosage: 10 G, QOW
     Route: 058
  12. DOXYCYCLINE [Suspect]
     Active Substance: DOXYCYCLINE
  13. IBUPROFEN [Concomitant]
     Active Substance: IBUPROFEN
  14. ALBUTEROL SULFATE [Concomitant]
     Active Substance: ALBUTEROL SULFATE
  15. BREO ELLIPTA [Concomitant]
     Active Substance: FLUTICASONE FUROATE\VILANTEROL TRIFENATATE
  16. CYCLOBENZAPRINE [Concomitant]
     Active Substance: CYCLOBENZAPRINE
  17. Triamcinolon [Concomitant]
  18. XEMBIFY [Concomitant]
     Active Substance: HUMAN IMMUNOGLOBULIN G

REACTIONS (33)
  - Nausea [Recovered/Resolved]
  - Vomiting [Recovered/Resolved]
  - Chills [Unknown]
  - Vomiting [Unknown]
  - Asthenia [Unknown]
  - Fatigue [Unknown]
  - Mental disorder [Unknown]
  - Abdominal discomfort [Unknown]
  - Vomiting [Unknown]
  - Asthenia [Unknown]
  - Feeling abnormal [Unknown]
  - Tremor [Unknown]
  - Abdominal distension [Unknown]
  - Feeding disorder [Unknown]
  - Feeling abnormal [Unknown]
  - Feeling hot [Unknown]
  - Discomfort [Unknown]
  - Product use in unapproved indication [Recovered/Resolved]
  - Thyroid disorder [Unknown]
  - Dizziness [Unknown]
  - Vomiting [Unknown]
  - Feeling abnormal [Unknown]
  - Fear of injection [Unknown]
  - Confusional state [Unknown]
  - Product dose omission issue [Unknown]
  - Off label use [Unknown]
  - Vomiting [Unknown]
  - Feeling cold [Unknown]
  - Chills [Unknown]
  - Tremor [Unknown]
  - Cold sweat [Unknown]
  - Dizziness [Unknown]
  - Inappropriate schedule of product administration [Recovered/Resolved]

NARRATIVE: CASE EVENT DATE: 20250701
